FAERS Safety Report 10363995 (Version 1)
Quarter: 2014Q3

REPORT INFORMATION
  Report Type: Report from Study
  Country: US (occurrence: US)
  Receive Date: 20140805
  Receipt Date: 20140805
  Transmission Date: 20150326
  Serious: Yes (Hospitalization, Other)
  Sender: FDA-Public Use
  Company Number: PHEH2014US015376

PATIENT
  Sex: Female
  Weight: 42.18 kg

DRUGS (2)
  1. XOPENEX [Concomitant]
     Active Substance: LEVALBUTEROL HYDROCHLORIDE
     Dosage: UNK
  2. TOBI [Suspect]
     Active Substance: TOBRAMYCIN
     Dosage: 1 DF, BID (300 MG/ 5 ML)
     Route: 055
     Dates: start: 201112

REACTIONS (3)
  - Pulmonary function test decreased [Not Recovered/Not Resolved]
  - Bronchiectasis [Not Recovered/Not Resolved]
  - Dyspnoea [Not Recovered/Not Resolved]
